FAERS Safety Report 7913561-2 (Version None)
Quarter: 2011Q4

REPORT INFORMATION
  Report Type: 
  Country: None (occurrence: None)
  Receive Date: 20111115
  Receipt Date: 20111110
  Transmission Date: 20120403
  Serious: Yes (Death, Other)
  Sender: FDA-Public Use
  Company Number: IE-AMGEN-IRLSP2011047080

PATIENT
  Age: 34 Year
  Sex: Female

DRUGS (13)
  1. AMITRIPTYLINE HCL [Concomitant]
     Indication: PRODUCT USED FOR UNKNOWN INDICATION
  2. PREGABALIN [Concomitant]
     Indication: PRODUCT USED FOR UNKNOWN INDICATION
  3. MILPAR [Concomitant]
     Indication: PRODUCT USED FOR UNKNOWN INDICATION
  4. CIPROXIN                           /00697201/ [Concomitant]
     Indication: PRODUCT USED FOR UNKNOWN INDICATION
  5. MOVICOL                            /01625101/ [Concomitant]
     Indication: PRODUCT USED FOR UNKNOWN INDICATION
  6. LANSOPRAZOLE [Concomitant]
     Indication: PRODUCT USED FOR UNKNOWN INDICATION
  7. NEULASTA [Suspect]
     Indication: CHEMOTHERAPY
     Dosage: 6 MG, 3 TIMES/WK
     Route: 058
     Dates: start: 20110203, end: 20110401
  8. ARCOXIA [Concomitant]
     Indication: PRODUCT USED FOR UNKNOWN INDICATION
  9. SENNA                              /00142201/ [Concomitant]
     Indication: PRODUCT USED FOR UNKNOWN INDICATION
  10. SCHERIPROCT                        /00212301/ [Concomitant]
     Indication: PRODUCT USED FOR UNKNOWN INDICATION
  11. PALLADONE [Concomitant]
     Indication: PRODUCT USED FOR UNKNOWN INDICATION
  12. DEXAMETHASONE [Concomitant]
     Indication: PRODUCT USED FOR UNKNOWN INDICATION
  13. MOTILIUM                           /00498201/ [Concomitant]
     Indication: PRODUCT USED FOR UNKNOWN INDICATION

REACTIONS (4)
  - SEPSIS [None]
  - CERVIX CARCINOMA [None]
  - ORGAN FAILURE [None]
  - GENERAL PHYSICAL HEALTH DETERIORATION [None]
